FAERS Safety Report 22391977 (Version 1)
Quarter: 2023Q2

REPORT INFORMATION
  Report Type: Spontaneous
  Country: IT (occurrence: IT)
  Receive Date: 20230601
  Receipt Date: 20230601
  Transmission Date: 20230722
  Serious: Yes (Death, Hospitalization, Other)
  Sender: FDA-Public Use
  Company Number: IT-MENARINI-IT-MEN-088304

PATIENT
  Age: 82 Year
  Sex: Female

DRUGS (1)
  1. METFORMIN HYDROCHLORIDE [Suspect]
     Active Substance: METFORMIN HYDROCHLORIDE
     Indication: Product used for unknown indication
     Dosage: 2000 MILLIGRAM, ONCE A DAY
     Route: 065

REACTIONS (6)
  - Urosepsis [Fatal]
  - Metabolic acidosis [Unknown]
  - Anuria [Unknown]
  - Renal failure [Unknown]
  - Sensory level abnormal [Unknown]
  - Toxicity to various agents [Unknown]
